FAERS Safety Report 9517456 (Version 1)
Quarter: 2013Q3

REPORT INFORMATION
  Report Type: Spontaneous
  Country: US (occurrence: US)
  Receive Date: 20130911
  Receipt Date: 20130911
  Transmission Date: 20140515
  Serious: No
  Sender: FDA-Public Use
  Company Number: US-ASTRAZENECA-2013SE58658

PATIENT
  Age: 75 Year
  Sex: Male
  Weight: 77.1 kg

DRUGS (6)
  1. SYMBICORT [Suspect]
     Indication: ASTHMA
     Dosage: 160/4.5, 2 PUFFS BID
     Route: 055
     Dates: end: 2011
  2. SYMBICORT [Suspect]
     Indication: ASTHMA
     Dosage: 1 PUFF BID
     Route: 055
     Dates: start: 2011, end: 2011
  3. SYMBICORT [Suspect]
     Indication: ASTHMA
     Dosage: 2 PUFFS BID
     Route: 055
     Dates: start: 2011
  4. DIOVAN [Concomitant]
     Indication: BLOOD PRESSURE ABNORMAL
  5. ALLOPURINOL [Concomitant]
     Indication: GOUT
  6. MONTELUKAST [Concomitant]
     Indication: RESPIRATORY DISORDER

REACTIONS (3)
  - Asthma [Recovered/Resolved]
  - Psoriasis [Recovering/Resolving]
  - Off label use [Recovered/Resolved]
